FAERS Safety Report 20157537 (Version 1)
Quarter: 2021Q4

REPORT INFORMATION
  Report Type: Spontaneous
  Country: US (occurrence: US)
  Receive Date: 20211207
  Receipt Date: 20211207
  Transmission Date: 20220303
  Serious: No
  Sender: FDA-Public Use
  Company Number: US-IBSA PHARMA INC.-2021IBS000042

PATIENT

DRUGS (3)
  1. TIROSINT [Suspect]
     Active Substance: LEVOTHYROXINE SODIUM
     Indication: Autoimmune thyroiditis
     Dosage: 2 DAYS 112MCG THEN 1 DAY 100MCG
     Route: 048
     Dates: start: 2013
  2. TIROSINT [Suspect]
     Active Substance: LEVOTHYROXINE SODIUM
     Dosage: 112 ?G, UNK
     Dates: start: 202102, end: 20210306
  3. TIROSINT [Suspect]
     Active Substance: LEVOTHYROXINE SODIUM
     Dosage: 100 ?G, UNK
     Dates: start: 202102, end: 20210306

REACTIONS (7)
  - Constipation [Recovering/Resolving]
  - Weight increased [Recovering/Resolving]
  - Feeling abnormal [Not Recovered/Not Resolved]
  - Fatigue [Recovering/Resolving]
  - Drug ineffective [Unknown]
  - Palpitations [Not Recovered/Not Resolved]
  - Product quality issue [Unknown]

NARRATIVE: CASE EVENT DATE: 20210101
